FAERS Safety Report 6022013-9 (Version None)
Quarter: 2008Q4

REPORT INFORMATION
  Report Type: 
  Country: None (occurrence: None)
  Receive Date: 20081223
  Receipt Date: 20081211
  Transmission Date: 20090506
  Serious: Yes (Life-Threatening, Other)
  Sender: FDA-Public Use
  Company Number: 2008S1016247

PATIENT
  Age: 37 Year
  Sex: Female
  Weight: 56.6996 kg

DRUGS (1)
  1. FENTANYL TRANSDERMAL SYSTEM [Suspect]
     Indication: BACK PAIN
     Dosage: 12 UG;EVERY HOUR;TRANSDERMAL
     Route: 062
     Dates: start: 20080815, end: 20080816

REACTIONS (8)
  - CHEST PAIN [None]
  - CRYING [None]
  - DIZZINESS [None]
  - DRUG EFFECT INCREASED [None]
  - DYSPEPSIA [None]
  - DYSPNOEA [None]
  - PANIC ATTACK [None]
  - VOMITING [None]
